FAERS Safety Report 18808461 (Version 2)
Quarter: 2022Q3

REPORT INFORMATION
  Report Type: Spontaneous
  Country: CA (occurrence: CA)
  Receive Date: 20210129
  Receipt Date: 20220713
  Transmission Date: 20221027
  Serious: Yes (Death, Other)
  Sender: FDA-Public Use
  Company Number: CA-GLAXOSMITHKLINE-US2021GSK021568

PATIENT

DRUGS (1)
  1. AVANDIA [Suspect]
     Active Substance: ROSIGLITAZONE MALEATE
     Indication: Diabetes mellitus
     Dosage: UNK UNK, QD
     Route: 048
     Dates: start: 20020506, end: 20060731

REACTIONS (4)
  - Death [Fatal]
  - Cardiac failure congestive [Unknown]
  - Stent placement [Unknown]
  - Cardiac disorder [Unknown]
